FAERS Safety Report 7999421-X (Version None)
Quarter: 2011Q4

REPORT INFORMATION
  Report Type: 
  Country: None (occurrence: None)
  Receive Date: 20111221
  Receipt Date: 20111214
  Transmission Date: 20120403
  Serious: Yes (Hospitalization)
  Sender: FDA-Public Use
  Company Number: US-ELI_LILLY_AND_COMPANY-US201112003893

PATIENT
  Sex: Female

DRUGS (3)
  1. HUMALOG [Suspect]
     Dosage: UNK UNK, OTHER
     Route: 065
     Dates: start: 20081201
  2. HUMALOG [Suspect]
     Indication: DIABETES MELLITUS
     Dosage: UNK UNK, OTHER
     Route: 065
     Dates: start: 20081201
  3. GLIMEPIRIDE [Concomitant]
     Dosage: UNK

REACTIONS (2)
  - PANCREATITIS ACUTE [None]
  - STENT REMOVAL [None]
